FAERS Safety Report 11690420 (Version 2)
Quarter: 2015Q4

REPORT INFORMATION
  Report Type: Spontaneous
  Country: US (occurrence: US)
  Receive Date: 20151102
  Receipt Date: 20151202
  Transmission Date: 20160304
  Serious: Yes (Other)
  Sender: FDA-Public Use
  Company Number: US-PFIZER INC-2015355966

PATIENT
  Age: 84 Year
  Sex: Female
  Weight: 77 kg

DRUGS (4)
  1. ADVIL [Suspect]
     Active Substance: IBUPROFEN
     Indication: ARTHRALGIA
     Dosage: 200 MG, EVERY 4 HRS, WHILE AWAKE
     Dates: start: 2015, end: 20151019
  2. ADVIL [Suspect]
     Active Substance: IBUPROFEN
     Indication: PAIN IN EXTREMITY
  3. TYLENOL [Suspect]
     Active Substance: ACETAMINOPHEN
     Indication: PAIN IN EXTREMITY
  4. TYLENOL [Suspect]
     Active Substance: ACETAMINOPHEN
     Indication: ARTHRALGIA
     Dosage: 2 DF, 4X/DAY
     Route: 048
     Dates: start: 2015, end: 2015

REACTIONS (2)
  - Haematochezia [Unknown]
  - Product use issue [Unknown]

NARRATIVE: CASE EVENT DATE: 2015
